FAERS Safety Report 8796484 (Version 4)
Quarter: 2012Q4

REPORT INFORMATION
  Report Type: 
  Country: US (occurrence: US)
  Receive Date: 20120919
  Receipt Date: 20121015
  Transmission Date: 20130627
  Serious: Yes (Life-Threatening, Hospitalization)
  Sender: FDA-Public Use
  Company Number: US-GILEAD-2012-0061238

PATIENT
  Sex: Male

DRUGS (4)
  1. LETAIRIS [Suspect]
     Indication: PULMONARY HYPERTENSION
     Dosage: 10 mg, UNK
     Route: 048
     Dates: start: 20120909, end: 201209
  2. LETAIRIS [Suspect]
     Indication: IDIOPATHIC PULMONARY FIBROSIS
     Dosage: 5 mg, UNK
     Route: 048
     Dates: start: 20120815, end: 20120908
  3. LETAIRIS [Suspect]
     Indication: CHRONIC OBSTRUCTIVE PULMONARY DISEASE
  4. TYVASO [Suspect]
     Indication: COR PULMONALE CHRONIC
     Dosage: UNK
     Dates: start: 20120829

REACTIONS (3)
  - Arrhythmia [Unknown]
  - Atrial flutter [Unknown]
  - Oedema peripheral [Unknown]
